FAERS Safety Report 8524190-4 (Version None)
Quarter: 2012Q3

REPORT INFORMATION
  Report Type: 
  Country: None (occurrence: None)
  Receive Date: 20120720
  Receipt Date: 20120716
  Transmission Date: 20120928
  Serious: Yes (Death, Other)
  Sender: FDA-Public Use
  Company Number: US-PFIZER INC-2012124606

PATIENT
  Sex: Female

DRUGS (5)
  1. GABAPENTIN [Suspect]
     Dosage: 600 MG, UNK
  2. LYRICA [Suspect]
     Indication: HERPES ZOSTER
     Dosage: UNK
  3. HYDROCODONE BITARTRATE [Suspect]
     Dosage: 500 MG, UNK
  4. IBUPROFEN [Suspect]
     Dosage: 800 MG, UNK
  5. NORTRIPTYLINE HCL [Suspect]
     Dosage: 25 MG, UNK

REACTIONS (2)
  - COMPLETED SUICIDE [None]
  - SUICIDAL IDEATION [None]
